FAERS Safety Report 10755703 (Version 1)
Quarter: 2015Q1

REPORT INFORMATION
  Report Type: Spontaneous
  Country: GB (occurrence: GB)
  Receive Date: 20150202
  Receipt Date: 20150202
  Transmission Date: 20150721
  Serious: Yes (Hospitalization)
  Sender: FDA-Public Use
  Company Number: GB-TEVA-536564ISR

PATIENT

DRUGS (2)
  1. QUETIAPINE [Suspect]
     Active Substance: QUETIAPINE
     Indication: PRODUCT USED FOR UNKNOWN INDICATION
     Dosage: 150 MG, UNK
     Route: 065
  2. ARIPIPRAZOLE. [Suspect]
     Active Substance: ARIPIPRAZOLE
     Indication: SCHIZOPHRENIA
     Dosage: 1 DOSAGE FORMS DAILY; 1 DF, QD, 10MG TO 15MG DAILY
     Route: 048
     Dates: start: 20140626, end: 20140716

REACTIONS (12)
  - Social phobia [Unknown]
  - Migraine [Unknown]
  - Photophobia [Unknown]
  - Headache [Unknown]
  - Anxiety [Unknown]
  - Musculoskeletal stiffness [Unknown]
  - Meningitis [Unknown]
  - Haemorrhage [Unknown]
  - Mood altered [Unknown]
  - Suspiciousness [Unknown]
  - Neck pain [Unknown]
  - Pain in jaw [Unknown]

NARRATIVE: CASE EVENT DATE: 201407
